FAERS Safety Report 7194085-X (Version None)
Quarter: 2010Q4

REPORT INFORMATION
  Report Type: 
  Country: None (occurrence: None)
  Receive Date: 20101223
  Receipt Date: 20100928
  Transmission Date: 20110411
  Serious: No
  Sender: FDA-Public Use
  Company Number: US-AMGEN-TCS432911

PATIENT

DRUGS (7)
  1. ENBREL [Suspect]
     Indication: RHEUMATOID ARTHRITIS
     Dosage: 50 MG, QWK
     Route: 058
     Dates: start: 20100513, end: 20100819
  2. METHOTREXATE [Concomitant]
     Dosage: UNK UNK, UNK
  3. TRAMADOL [Concomitant]
     Dosage: 200 MG, PRN
     Route: 048
  4. ATORVASTATIN CALCIUM [Concomitant]
     Dosage: 10 MG, QD
     Route: 048
  5. CELECOXIB [Concomitant]
     Dosage: 200 MG, QD
     Route: 048
  6. LANSOPRAZOLE [Concomitant]
     Dosage: 30 MG, QD
     Route: 048
  7. AMLODIPINE BESYLATE [Concomitant]
     Dosage: UNK UNK, QD
     Route: 048

REACTIONS (9)
  - DRUG INEFFECTIVE [None]
  - FEAR [None]
  - INFLUENZA LIKE ILLNESS [None]
  - INJECTION SITE ERYTHEMA [None]
  - INJECTION SITE PRURITUS [None]
  - INJECTION SITE REACTION [None]
  - INJECTION SITE SWELLING [None]
  - INJECTION SITE WARMTH [None]
  - MALAISE [None]
